FAERS Safety Report 24119799 (Version 1)
Quarter: 2024Q3

REPORT INFORMATION
  Report Type: Spontaneous
  Country: JP (occurrence: JP)
  Receive Date: 20240722
  Receipt Date: 20240722
  Transmission Date: 20241016
  Serious: Yes (Hospitalization, Other)
  Sender: EXELIXIS
  Company Number: JP-ONO-2023JP017576

PATIENT
  Age: 66 Year
  Sex: Male
  Weight: 70.6 kg

DRUGS (21)
  1. CABOMETYX [Suspect]
     Active Substance: CABOZANTINIB S-MALATE
     Indication: Metastatic renal cell carcinoma
     Dosage: 40 MG, QD
     Route: 048
     Dates: start: 20221214, end: 20230111
  2. CABOMETYX [Suspect]
     Active Substance: CABOZANTINIB S-MALATE
     Dosage: 20 MG, QD
     Route: 048
     Dates: start: 20230112
  3. CABOMETYX [Suspect]
     Active Substance: CABOZANTINIB S-MALATE
     Dosage: 20 MG, QD 5TH COURSE
     Route: 048
     Dates: start: 20230209
  4. CABOMETYX [Suspect]
     Active Substance: CABOZANTINIB S-MALATE
     Dosage: 20 MG, QD 12TH COURSE
     Route: 048
     Dates: end: 20230518
  5. OPDIVO [Suspect]
     Active Substance: NIVOLUMAB
     Indication: Metastatic renal cell carcinoma
     Dosage: 240 MG, Q2W
     Route: 041
     Dates: start: 20221214
  6. OPDIVO [Suspect]
     Active Substance: NIVOLUMAB
     Dosage: 240 MG, Q2WEEKS, 3RD COURSE
     Route: 041
     Dates: start: 20230112
  7. OPDIVO [Suspect]
     Active Substance: NIVOLUMAB
     Dosage: 240 MG, Q2WEEKS, 5TH COURSE
     Route: 041
     Dates: start: 20230209
  8. OPDIVO [Suspect]
     Active Substance: NIVOLUMAB
     Dosage: 240 MG, Q2WEEKS, 12TH COURSE
     Route: 041
     Dates: end: 20230518
  9. LOXOPROFEN [Concomitant]
     Active Substance: LOXOPROFEN
     Indication: Product used for unknown indication
     Dosage: UNK
     Route: 048
     Dates: start: 202304
  10. MAGNESIUM OXIDE [Concomitant]
     Active Substance: MAGNESIUM OXIDE
     Indication: Product used for unknown indication
     Dosage: UNK
     Route: 048
  11. HYALURONATE SODIUM [Concomitant]
     Active Substance: HYALURONATE SODIUM
     Indication: Product used for unknown indication
     Dosage: UNK
     Route: 047
  12. HEPARINOID [Concomitant]
     Indication: Product used for unknown indication
     Dosage: UNK
     Route: 061
     Dates: start: 202212
  13. CANDESARTAN CILEXETIL [Concomitant]
     Active Substance: CANDESARTAN CILEXETIL
     Indication: Product used for unknown indication
     Dosage: UNK
     Route: 048
     Dates: start: 202212, end: 202302
  14. LOPERAMIDE HYDROCHLORIDE [Concomitant]
     Active Substance: LOPERAMIDE HYDROCHLORIDE
     Indication: Product used for unknown indication
     Dosage: UNK
     Route: 048
     Dates: start: 202302, end: 202303
  15. CANDESARTAN [Concomitant]
     Active Substance: CANDESARTAN
     Indication: Product used for unknown indication
     Dosage: UNK
     Route: 048
     Dates: start: 202302
  16. UREA [Concomitant]
     Active Substance: UREA
     Indication: Product used for unknown indication
     Dosage: UNK
     Route: 061
     Dates: start: 202302
  17. MIYA-BM [Concomitant]
     Active Substance: CLOSTRIDIUM BUTYRICUM SPORES STRAIN M-55
     Indication: Product used for unknown indication
     Dosage: UNK
     Route: 048
     Dates: start: 202303
  18. DIPHENHYDRAMINE [Concomitant]
     Active Substance: DIPHENHYDRAMINE
     Indication: Product used for unknown indication
     Dosage: UNK
     Route: 061
     Dates: start: 202303
  19. OFLOXACIN [Concomitant]
     Active Substance: OFLOXACIN
     Indication: Product used for unknown indication
     Dosage: UNK
     Route: 061
  20. UREA [Concomitant]
     Active Substance: UREA
     Indication: Product used for unknown indication
     Dosage: UNK
     Route: 061
     Dates: start: 202212
  21. SENNOSIDES [Concomitant]
     Active Substance: SENNOSIDES
     Indication: Product used for unknown indication
     Dosage: UNK
     Route: 061
     Dates: start: 202212

REACTIONS (31)
  - Encephalitis autoimmune [Not Recovered/Not Resolved]
  - Toxic encephalopathy [Not Recovered/Not Resolved]
  - Disorientation [Unknown]
  - Ophthalmoplegia [Unknown]
  - Dysmetria [Unknown]
  - Paraneoplastic neurological syndrome [Unknown]
  - Multiple sclerosis [Unknown]
  - Vitamin B1 deficiency [Unknown]
  - Meningitis viral [Unknown]
  - Wernicke^s encephalopathy [Unknown]
  - Encephalitis [Unknown]
  - Epilepsy [Unknown]
  - Condition aggravated [Unknown]
  - Rash erythematous [Unknown]
  - Dizziness [Unknown]
  - Pyrexia [Unknown]
  - Visual impairment [Unknown]
  - Diplopia [Unknown]
  - Muscular weakness [Unknown]
  - SARS-CoV-2 test false positive [Unknown]
  - Gait disturbance [Unknown]
  - Nervous system disorder [Unknown]
  - Nystagmus [Unknown]
  - Muscle rigidity [Unknown]
  - Diffusion-weighted brain MRI abnormal [Unknown]
  - Electroencephalogram abnormal [Unknown]
  - Dermatitis allergic [Recovering/Resolving]
  - Hepatic function abnormal [Unknown]
  - Platelet count decreased [Unknown]
  - Anaemia [Unknown]
  - Hyponatraemia [Unknown]

NARRATIVE: CASE EVENT DATE: 20230112
